FAERS Safety Report 4359205-0 (Version None)
Quarter: 2004Q2

REPORT INFORMATION
  Report Type: 
  Country: None (occurrence: None)
  Receive Date: 20040512
  Receipt Date: 20040204
  Transmission Date: 20050107
  Serious: Yes (Life-Threatening)
  Sender: FDA-Public Use
  Company Number: 2004197848FR

PATIENT
  Age: 55 Year
  Sex: Male
  Weight: 79 kg

DRUGS (9)
  1. ALDACTONE [Suspect]
     Dosage: 1 DF, ORAL
     Route: 048
  2. STAGID (METFORMIN EMBONATE) [Suspect]
     Dosage: 2100 MG, ORAL
     Route: 048
  3. DAONIL (GLIBENCLAMIDE) 5MG [Suspect]
     Dosage: 15 MG, DAILY, ORAL
     Route: 048
  4. LASIX [Suspect]
     Dosage: 40 MG, DAILY, ORAL
     Route: 048
  5. GLUCOR (ACARBOSE) 5MG [Suspect]
     Dosage: 150 MG, DAILY, ORAL
     Route: 048
  6. AOTAL (ACAMPROSATE) [Concomitant]
  7. EQUANIL [Concomitant]
  8. PROZAC [Concomitant]
  9. HAVLANE (LOPRAZOLAM MESILATE) TABLET [Concomitant]

REACTIONS (4)
  - HEPATIC CIRRHOSIS [None]
  - HEPATIC FAILURE [None]
  - LACTIC ACIDOSIS [None]
  - PROTHROMBIN LEVEL DECREASED [None]
